FAERS Safety Report 7019865-2 (Version None)
Quarter: 2010Q3

REPORT INFORMATION
  Report Type: 
  Country: None (occurrence: None)
  Receive Date: 20100929
  Receipt Date: 20100921
  Transmission Date: 20110219
  Serious: Yes (Hospitalization)
  Sender: FDA-Public Use
  Company Number: US-BAYER-201031622NA

PATIENT
  Age: 16 Year
  Sex: Female
  Weight: 66 kg

DRUGS (6)
  1. YAZ [Suspect]
     Indication: CONTRACEPTION
     Route: 048
     Dates: start: 20100401, end: 20100801
  2. ZOLOFT [Concomitant]
  3. CLARINEX [Concomitant]
  4. SINGULAIR [Concomitant]
  5. NASONEX [Concomitant]
  6. BENZACLIN [Concomitant]

REACTIONS (6)
  - DEEP VEIN THROMBOSIS [None]
  - DIZZINESS [None]
  - DYSPNOEA [None]
  - OEDEMA PERIPHERAL [None]
  - PAIN IN EXTREMITY [None]
  - THROMBOSIS [None]
